FAERS Safety Report 10420532 (Version 1)
Quarter: 2014Q2

REPORT INFORMATION
  Report Type: Spontaneous
  Country: US (occurrence: None)
  Receive Date: 20140618
  Receipt Date: 20140618
  Transmission Date: 20141212
  Serious: Yes (Hospitalization)
  Sender: FDA-Public Use
  Company Number: 097264

PATIENT
  Sex: Female
  Weight: 68 kg

DRUGS (3)
  1. LACOSAMIDE [Suspect]
     Indication: CONVULSION
     Route: 048
  2. KEPPRA [Suspect]
     Indication: CONVULSION
  3. ALEVE [Concomitant]

REACTIONS (2)
  - Convulsion [None]
  - Drug dose omission [None]
